FAERS Safety Report 12673619 (Version 1)
Quarter: 2016Q3

REPORT INFORMATION
  Report Type: Spontaneous
  Country: US (occurrence: US)
  Receive Date: 20160822
  Receipt Date: 20160822
  Transmission Date: 20161109
  Serious: No
  Sender: FDA-Public Use
  Company Number: US-PFIZER INC-2016393284

PATIENT
  Sex: Female

DRUGS (3)
  1. PRISTIQ EXTENDED-RELEASE [Suspect]
     Active Substance: DESVENLAFAXINE SUCCINATE
     Dosage: 150 MG, 1X/DAY
     Route: 048
  2. BIESTROGEN [Concomitant]
     Indication: HORMONE REPLACEMENT THERAPY
     Dosage: 1 DF, 1X/DAY (BIEST 0.25 MG, ONE CAPSULE A DAY)
  3. PROGESTERONE. [Concomitant]
     Active Substance: PROGESTERONE
     Indication: HORMONE REPLACEMENT THERAPY
     Dosage: 100 MG, UNK

REACTIONS (7)
  - Visual impairment [Unknown]
  - Metamorphopsia [Unknown]
  - Dizziness [Unknown]
  - Eye swelling [Unknown]
  - Eye pain [Unknown]
  - Ocular discomfort [Unknown]
  - Vertigo [Unknown]
